FAERS Safety Report 12890871 (Version 1)
Quarter: 2016Q4

REPORT INFORMATION
  Report Type: Spontaneous
  Country: None (occurrence: US)
  Receive Date: 20161025
  Receipt Date: 20161025
  Transmission Date: 20170207
  Serious: No
  Sender: FDA-Public Use
  Company Number: None

PATIENT
  Age: 5 Year
  Sex: Female

DRUGS (1)
  1. LUPRON DEPOT-PED [Suspect]
     Active Substance: LEUPROLIDE ACETATE
     Indication: DELAYED PUBERTY
     Dosage: 11.25MG EVERY 3 MONTHS IM
     Route: 030
     Dates: start: 20150903

REACTIONS (4)
  - Mood swings [None]
  - Vision blurred [None]
  - Night sweats [None]
  - Headache [None]

NARRATIVE: CASE EVENT DATE: 20160115
